FAERS Safety Report 10523812 (Version 1)
Quarter: 2014Q4

REPORT INFORMATION
  Report Type: Spontaneous
  Country: US (occurrence: None)
  Receive Date: 20141015
  Receipt Date: 20141015
  Transmission Date: 20150528
  Serious: Yes (Other)
  Sender: FDA-Public Use
  Company Number: None

PATIENT
  Age: 82 Year
  Sex: Female
  Weight: 61.24 kg

DRUGS (9)
  1. SYNTHROID [Concomitant]
     Active Substance: LEVOTHYROXINE SODIUM
  2. ALENDRONATE SODIUM. [Suspect]
     Active Substance: ALENDRONATE SODIUM
     Dosage: 4 PILLS PER MONTH 1 PILL, ONCE A WEEK BY MOUTH
     Route: 048
     Dates: start: 20140928, end: 20140928
  3. METPROLOL [Concomitant]
     Active Substance: METOPROLOL
  4. RANEXA [Concomitant]
     Active Substance: RANOLAZINE
  5. ISOSORBIDE [Concomitant]
     Active Substance: ISOSORBIDE
  6. ALENDRONATE SODIUM. [Suspect]
     Active Substance: ALENDRONATE SODIUM
     Indication: OSTEOPOROSIS
     Dosage: 4 PILLS PER MONTH 1 PILL, ONCE A WEEK BY MOUTH
     Route: 048
     Dates: start: 20140928, end: 20140928
  7. XANAX [Concomitant]
     Active Substance: ALPRAZOLAM
  8. VITAMIN D [Concomitant]
     Active Substance: CHOLECALCIFEROL
  9. ECOTRIN [Concomitant]
     Active Substance: ASPIRIN

REACTIONS (3)
  - Gait disturbance [None]
  - Musculoskeletal disorder [None]
  - Movement disorder [None]

NARRATIVE: CASE EVENT DATE: 20140928
